FAERS Safety Report 9210766 (Version 3)
Quarter: 2013Q2

REPORT INFORMATION
  Report Type: Spontaneous
  Country: CA (occurrence: CA)
  Receive Date: 20130404
  Receipt Date: 20130516
  Transmission Date: 20140414
  Serious: Yes (Life-Threatening)
  Sender: FDA-Public Use
  Company Number: CHPA2013CA005847

PATIENT
  Age: 72 Year
  Sex: Female

DRUGS (1)
  1. BUCKLEY^S CONGESTION AND COUGH [Suspect]
     Indication: COUGH
     Dosage: 2 TSP, ONCE/SINGLE
     Route: 048
     Dates: start: 20130402

REACTIONS (3)
  - Dyspnoea [Recovered/Resolved]
  - Malaise [Recovered/Resolved]
  - Nausea [Recovered/Resolved]
